FAERS Safety Report 10238732 (Version 1)
Quarter: 2014Q2

REPORT INFORMATION
  Report Type: Spontaneous
  Country: CN (occurrence: None)
  Receive Date: 20140612
  Receipt Date: 20140612
  Transmission Date: 20141212
  Serious: Yes (Other)
  Sender: FDA-Public Use
  Company Number: FK201402227

PATIENT
  Age: 77 Year
  Sex: Female

DRUGS (4)
  1. INTRALIPID (LIPID EMULSION) (LIPID EMULSION) [Suspect]
     Indication: NUTRITIONAL SUPPLEMENTATION
     Route: 041
     Dates: start: 20130927, end: 20130927
  2. PROMETHAZINE (PROMETHAZINE) [Concomitant]
  3. DEXAMETHASONE SODIUM PHOSPHATE (DEXAMETHASONE SODIUM PHOSPHATE) [Concomitant]
  4. COMPOUND ANLIM BARBITUO (DIAZEPAM) [Concomitant]

REACTIONS (5)
  - Chills [None]
  - Hyperpyrexia [None]
  - Muscle twitching [None]
  - Pyrexia [None]
  - Heart rate increased [None]
